FAERS Safety Report 15760901 (Version 2)
Quarter: 2019Q1

REPORT INFORMATION
  Report Type: Spontaneous
  Country: US (occurrence: US)
  Receive Date: 20181226
  Receipt Date: 20190318
  Transmission Date: 20190417
  Serious: No
  Sender: FDA-Public Use
  Company Number: US-PFIZER INC-2018502126

PATIENT
  Age: 68 Year
  Sex: Male

DRUGS (2)
  1. LYRICA [Suspect]
     Active Substance: PREGABALIN
     Indication: POLYNEUROPATHY
     Dosage: 150 MG, UNK
  2. LYRICA [Suspect]
     Active Substance: PREGABALIN
     Indication: NEURALGIA
     Dosage: 150 MG, 2X/DAY
     Route: 048

REACTIONS (6)
  - Withdrawal syndrome [Unknown]
  - Malaise [Unknown]
  - Nasopharyngitis [Unknown]
  - Discomfort [Unknown]
  - Restlessness [Unknown]
  - Irritability [Unknown]
